FAERS Safety Report 8344011-2 (Version None)
Quarter: 2012Q2

REPORT INFORMATION
  Report Type: 
  Country: None (occurrence: None)
  Receive Date: 20120508
  Receipt Date: 20101115
  Transmission Date: 20120825
  Serious: No
  Sender: FDA-Public Use
  Company Number: US-TEVA-2010005937

PATIENT
  Sex: Male
  Weight: 59.02 kg

DRUGS (2)
  1. TREANDA [Suspect]
     Indication: NON-HODGKIN'S LYMPHOMA
     Route: 042
     Dates: start: 20100801
  2. CYCLOSPORINE [Concomitant]

REACTIONS (3)
  - INFUSION SITE INDURATION [None]
  - INFUSION SITE PAIN [None]
  - VENOUS OCCLUSION [None]
